FAERS Safety Report 16777343 (Version 1)
Quarter: 2019Q4

REPORT INFORMATION
  Report Type: Spontaneous
  Country: US (occurrence: US)
  Receive Date: 20190905
  Receipt Date: 20190905
  Transmission Date: 20200122
  Serious: Yes (Other)
  Sender: FDA-Public Use
  Company Number: None

PATIENT
  Age: 59 Year
  Sex: Female
  Weight: 146.5 kg

DRUGS (1)
  1. XOLAIR [Suspect]
     Active Substance: OMALIZUMAB
     Dosage: 300 MG SUBCUTANEOUS EVERY 28 DAYS?
     Route: 058

REACTIONS (3)
  - Treatment failure [None]
  - Urticaria [None]
  - Rash papular [None]

NARRATIVE: CASE EVENT DATE: 20190702
